FAERS Safety Report 4557710-5 (Version None)
Quarter: 2005Q1

REPORT INFORMATION
  Report Type: 
  Country: None (occurrence: None)
  Receive Date: 20050103
  Receipt Date: 20040826
  Transmission Date: 20050727
  Serious: Yes (Other)
  Sender: FDA-Public Use
  Company Number: 2004UW18131

PATIENT
  Age: 76 Year
  Sex: Female
  Weight: 87.0906 kg

DRUGS (6)
  1. CRESTOR [Suspect]
     Indication: BLOOD CHOLESTEROL INCREASED
     Dosage: 5 MG PO
     Route: 048
     Dates: start: 20040824
  2. ALBUTEROL [Concomitant]
  3. FLOVENT [Concomitant]
  4. DIOVAN [Concomitant]
  5. MAXZIDE [Concomitant]
  6. POTASSIUM CHLORIDE [Concomitant]

REACTIONS (5)
  - ABDOMINAL PAIN UPPER [None]
  - DIARRHOEA [None]
  - HYPERHIDROSIS [None]
  - NAUSEA [None]
  - VOMITING [None]
